FAERS Safety Report 26167384 (Version 1)
Quarter: 2025Q4

REPORT INFORMATION
  Report Type: Spontaneous
  Country: EU (occurrence: EU)
  Receive Date: 20251217
  Receipt Date: 20251217
  Transmission Date: 20260118
  Serious: Yes (Death)
  Sender: CHEPLAPHARM
  Company Number: None

PATIENT
  Age: 39 Year
  Sex: Male

DRUGS (11)
  1. OLANZAPINE [Suspect]
     Active Substance: OLANZAPINE
  2. GABAPENTIN [Suspect]
     Active Substance: GABAPENTIN
  3. METHADONE [Suspect]
     Active Substance: METHADONE HYDROCHLORIDE
  4. CYAMEMAZINE [Suspect]
     Active Substance: CYAMEMAZINE
  5. TROPATEPINE HYDROCHLORIDE [Suspect]
     Active Substance: TROPATEPINE HYDROCHLORIDE
  6. NEBIVOLOL [Suspect]
     Active Substance: NEBIVOLOL
  7. PANTOPRAZOLE [Suspect]
     Active Substance: PANTOPRAZOLE
  8. POLYETHYLENE GLYCOLS [Suspect]
     Active Substance: POLYETHYLENE GLYCOLS
  9. OXAZEPAM [Suspect]
     Active Substance: OXAZEPAM
  10. CHOLECALCIFEROL [Suspect]
     Active Substance: CHOLECALCIFEROL
  11. EFFERALGAN [Suspect]
     Active Substance: ACETAMINOPHEN

REACTIONS (1)
  - Toxicity to various agents [Fatal]
